FAERS Safety Report 5098474-9 (Version None)
Quarter: 2006Q3

REPORT INFORMATION
  Report Type: 
  Country: None (occurrence: None)
  Receive Date: 20060906
  Receipt Date: 20060127
  Transmission Date: 20061208
  Serious: No
  Sender: FDA-Public Use
  Company Number: US-GLAXOSMITHKLINE-A0591294A

PATIENT
  Age: 58 Year
  Sex: Female

DRUGS (7)
  1. REQUIP [Suspect]
     Indication: RESTLESS LEGS SYNDROME
     Dosage: .75MG PER DAY
     Route: 048
  2. SYNTHROID [Concomitant]
  3. ZYRTEC-D 12 HOUR [Concomitant]
  4. HYDROCHLOROTHIAZIDE [Concomitant]
  5. LEXAPRO [Concomitant]
  6. PROMETRIUM [Concomitant]
  7. CLONAZEPAM [Concomitant]

REACTIONS (2)
  - BLOOD POTASSIUM DECREASED [None]
  - RESTLESS LEGS SYNDROME [None]
